FAERS Safety Report 4822369-6 (Version None)
Quarter: 2005Q4

REPORT INFORMATION
  Report Type: 
  Country: None (occurrence: None)
  Receive Date: 20051108
  Receipt Date: 20051104
  Transmission Date: 20060501
  Serious: Yes (Death)
  Sender: FDA-Public Use
  Company Number: JP-BOEHRINGER INGELHEIM PHARMACEUTICALS, INC.-2005-BP-19260NB

PATIENT
  Age: 68 Year
  Sex: Male

DRUGS (8)
  1. SPIRIVA [Suspect]
     Indication: EMPHYSEMA
     Route: 055
     Dates: start: 20051024
  2. SUNRYTHM [Concomitant]
     Indication: ARRHYTHMIA SUPRAVENTRICULAR
     Route: 048
     Dates: start: 20050501
  3. DIGOSIN [Concomitant]
     Indication: ARRHYTHMIA SUPRAVENTRICULAR
     Route: 048
     Dates: start: 20050601
  4. LOXONIN [Concomitant]
     Indication: MUSCULOSKELETAL PAIN
     Route: 048
     Dates: start: 20050701
  5. DAI-BOFU-TO [Concomitant]
     Indication: MUSCULOSKELETAL PAIN
     Route: 048
     Dates: start: 20050701
  6. MUCOSTA [Concomitant]
     Indication: GASTRITIS
     Route: 048
     Dates: start: 20050701
  7. MUCOSOLVAN [Concomitant]
     Indication: EMPHYSEMA
     Route: 048
  8. HOKUNALIN:  TAPE (TULOBUTEROL)) [Concomitant]
     Indication: EMPHYSEMA
     Route: 062
     Dates: start: 20051001

REACTIONS (1)
  - MYOCARDIAL INFARCTION [None]
